FAERS Safety Report 20705136 (Version 1)
Quarter: 2022Q2

REPORT INFORMATION
  Report Type: Spontaneous
  Country: JP (occurrence: JP)
  Receive Date: 20220413
  Receipt Date: 20220413
  Transmission Date: 20220721
  Serious: Yes (Hospitalization, Other)
  Sender: FDA-Public Use
  Company Number: JP-PFIZER INC-202100977629

PATIENT
  Age: 75 Year
  Sex: Male
  Weight: 45 kg

DRUGS (10)
  1. COMIRNATY [Suspect]
     Active Substance: TOZINAMERAN
     Indication: COVID-19 immunisation
     Dosage: DOSE 1, SINGLE
     Route: 030
     Dates: start: 20210628, end: 20210628
  2. LEVOFLOXACIN [Suspect]
     Active Substance: LEVOFLOXACIN
     Indication: Atypical pneumonia
     Dosage: UNK
     Dates: start: 20210706, end: 20210710
  3. AMLODIPINE [Concomitant]
     Active Substance: AMLODIPINE BESYLATE
     Indication: Hypertension
     Dosage: UNK
     Route: 048
     Dates: start: 20210520
  4. PITAVASTATIN [Concomitant]
     Active Substance: PITAVASTATIN
     Indication: Hyperlipidaemia
     Dosage: UNK
     Route: 048
     Dates: start: 20210525
  5. PITAVASTATIN [Concomitant]
     Active Substance: PITAVASTATIN
     Indication: Dyslipidaemia
  6. ALLOPURINOL [Concomitant]
     Active Substance: ALLOPURINOL
     Indication: Hyperuricaemia
     Dosage: UNK
     Route: 048
     Dates: start: 20210525
  7. TAMSULOSIN [Concomitant]
     Active Substance: TAMSULOSIN
     Indication: Prostatic disorder
     Dosage: UNK
     Route: 048
  8. DUTASTERIDE [Concomitant]
     Active Substance: DUTASTERIDE
     Indication: Osteoporosis
     Dosage: UNK
     Route: 048
  9. PURSENNID EX-LAX [SENNOSIDE A+B] [Concomitant]
     Indication: Constipation
     Dosage: UNK
     Route: 048
     Dates: start: 20210519
  10. SODIUM PICOSULFATE [Concomitant]
     Active Substance: SODIUM PICOSULFATE
     Indication: Constipation
     Dosage: UNK
     Route: 048
     Dates: start: 20210525

REACTIONS (7)
  - Pulmonary toxicity [Recovering/Resolving]
  - Pneumonia [Recovered/Resolved]
  - Pyrexia [Recovered/Resolved]
  - Interstitial lung disease [Recovered/Resolved]
  - Oxygen saturation decreased [Recovered/Resolved]
  - Alveolitis [Recovered/Resolved]
  - Vaccination site pain [Recovered/Resolved]

NARRATIVE: CASE EVENT DATE: 20210628
